FAERS Safety Report 20102932 (Version 1)
Quarter: 2021Q4

REPORT INFORMATION
  Report Type: Spontaneous
  Country: US (occurrence: US)
  Receive Date: 20211123
  Receipt Date: 20211123
  Transmission Date: 20220303
  Serious: No
  Sender: FDA-Public Use
  Company Number: US-TAKEDA-2021TUS070356

PATIENT
  Sex: Female

DRUGS (2)
  1. VELCADE [Suspect]
     Active Substance: BORTEZOMIB
     Indication: Plasma cell myeloma
     Dosage: UNK
     Route: 042
  2. REVLIMID [Concomitant]
     Active Substance: LENALIDOMIDE
     Dosage: UNK

REACTIONS (1)
  - Eyelid infection [Unknown]
